FAERS Safety Report 15053823 (Version 1)
Quarter: 2018Q2

REPORT INFORMATION
  Report Type: Report from Study
  Country: US (occurrence: US)
  Receive Date: 20180622
  Receipt Date: 20180622
  Transmission Date: 20180711
  Serious: No
  Sender: FDA-Public Use
  Company Number: US-AMGEN-USASL2016057864

PATIENT
  Age: 60 Year
  Sex: Female

DRUGS (4)
  1. NPLATE [Suspect]
     Active Substance: ROMIPLOSTIM
     Dosage: 300 MUG, UNK
     Route: 065
  2. PLAQUENIL [Concomitant]
     Active Substance: HYDROXYCHLOROQUINE SULFATE
     Indication: SYSTEMIC LUPUS ERYTHEMATOSUS
  3. NPLATE [Suspect]
     Active Substance: ROMIPLOSTIM
     Indication: PRODUCT USED FOR UNKNOWN INDICATION
     Dosage: 100 UNIT, Q3WK
     Route: 065
     Dates: start: 201505
  4. IMURAN [Concomitant]
     Active Substance: AZATHIOPRINE
     Indication: SYSTEMIC LUPUS ERYTHEMATOSUS

REACTIONS (6)
  - Inappropriate schedule of drug administration [Unknown]
  - Pain in extremity [Recovered/Resolved]
  - Platelet count decreased [Recovered/Resolved]
  - Gait disturbance [Recovered/Resolved]
  - Drug effect decreased [Unknown]
  - Inflammation [Recovered/Resolved]
